FAERS Safety Report 4401425-0 (Version None)
Quarter: 2004Q3

REPORT INFORMATION
  Report Type: 
  Country: None (occurrence: None)
  Receive Date: 20040907
  Receipt Date: 20040430
  Transmission Date: 20050211
  Serious: No
  Sender: FDA-Public Use
  Company Number: US-BRISTOL-MYERS SQUIBB COMPANY-12575890

PATIENT

DRUGS (1)
  1. COUMADIN [Suspect]
     Indication: THROMBOSIS

REACTIONS (1)
  - HYPERHIDROSIS [None]
